FAERS Safety Report 11441265 (Version 1)
Quarter: 2015Q3

REPORT INFORMATION
  Report Type: Spontaneous
  Country: US (occurrence: US)
  Receive Date: 20150821
  Receipt Date: 20150821
  Transmission Date: 20151125
  Serious: Yes (Other)
  Sender: FDA-Public Use
  Company Number: US-ELI_LILLY_AND_COMPANY-US200804006376

PATIENT
  Sex: Female
  Weight: 89.34 kg

DRUGS (4)
  1. ALISKIREN [Concomitant]
     Active Substance: ALISKIREN
     Indication: BLOOD PRESSURE MEASUREMENT
     Dosage: 300 MG, DAILY (1/D)
  2. PREVACID [Concomitant]
     Active Substance: LANSOPRAZOLE
     Dosage: 30 MG, UNK
  3. CYMBALTA [Suspect]
     Active Substance: DULOXETINE HYDROCHLORIDE
     Indication: DEPRESSION
     Dosage: 60 MG, UNK
  4. VERAPAMIL [Concomitant]
     Active Substance: VERAPAMIL HYDROCHLORIDE
     Dosage: 240 MG, DAILY (1/D)

REACTIONS (5)
  - Depressed mood [Unknown]
  - Suicidal ideation [Unknown]
  - Crying [Unknown]
  - Weight increased [Unknown]
  - Anger [Unknown]
